FAERS Safety Report 21367396 (Version 1)
Quarter: 2022Q3

REPORT INFORMATION
  Report Type: Spontaneous
  Country: US (occurrence: US)
  Receive Date: 20220923
  Receipt Date: 20220923
  Transmission Date: 20221027
  Serious: No
  Sender: FDA-Public Use
  Company Number: US-SA-SAC20220919001324

PATIENT
  Age: 53 Year
  Sex: Female

DRUGS (5)
  1. KEVZARA [Suspect]
     Active Substance: SARILUMAB
     Indication: Rheumatoid arthritis
     Dosage: 200 MG, QOW
     Route: 058
     Dates: start: 20220912
  2. SERTRALINE [Concomitant]
     Active Substance: SERTRALINE HYDROCHLORIDE
  3. CETROTIDE [Concomitant]
     Active Substance: CETRORELIX ACETATE
  4. METOLAZONE [Concomitant]
     Active Substance: METOLAZONE
  5. PREDNISOLONE [Concomitant]
     Active Substance: PREDNISOLONE

REACTIONS (4)
  - Pain in extremity [Recovered/Resolved]
  - Depression [Not Recovered/Not Resolved]
  - Neck pain [Recovered/Resolved]
  - Oropharyngeal pain [Recovered/Resolved]
